FAERS Safety Report 9908530 (Version 1)
Quarter: 2014Q1

REPORT INFORMATION
  Report Type: Report from Study
  Country: US (occurrence: US)
  Receive Date: 20140219
  Receipt Date: 20140219
  Transmission Date: 20141002
  Serious: Yes (Other)
  Sender: FDA-Public Use
  Company Number: US-ROCHE-1330860

PATIENT
  Sex: Female

DRUGS (8)
  1. AVASTIN [Suspect]
     Indication: BREAST CANCER FEMALE
     Route: 041
  2. AVASTIN [Suspect]
     Indication: BONE CANCER
  3. GRANISETRON [Suspect]
     Indication: BREAST CANCER FEMALE
     Route: 042
  4. GRANISETRON [Suspect]
     Indication: BONE CANCER
  5. DEXAMETHASONE SODIUM PHOSPHATE [Concomitant]
     Route: 042
  6. DIPHENHYDRAMINE HCL [Concomitant]
     Route: 042
  7. RANITIDINE HCL [Concomitant]
     Route: 042
  8. PACLITAXEL [Concomitant]
     Route: 041

REACTIONS (8)
  - Metastases to lung [Unknown]
  - Vitamin D deficiency [Unknown]
  - Obesity [Unknown]
  - Anaemia [Unknown]
  - Thrombocytopenia [Unknown]
  - Tumour pain [Unknown]
  - Lymphoedema [Unknown]
  - Sleep disorder [Unknown]
